FAERS Safety Report 20113258 (Version 3)
Quarter: 2022Q1

REPORT INFORMATION
  Report Type: Spontaneous
  Country: None (occurrence: US)
  Receive Date: 20211125
  Receipt Date: 20220104
  Transmission Date: 20220423
  Serious: Yes (Death, Other)
  Sender: FDA-Public Use
  Company Number: US-Vero Biotech-2122327

PATIENT
  Age: 28 Year
  Sex: Female

DRUGS (2)
  1. GENOSYL [Suspect]
     Active Substance: NITRIC OXIDE
     Indication: COVID-19
     Route: 055
     Dates: start: 20211111
  2. GENOSYL [Suspect]
     Active Substance: NITRIC OXIDE

REACTIONS (2)
  - Cardio-respiratory arrest [Fatal]
  - Underdose [Recovered/Resolved]

NARRATIVE: CASE EVENT DATE: 20211113
